FAERS Safety Report 5590642-2 (Version None)
Quarter: 2008Q1

REPORT INFORMATION
  Report Type: 
  Country: None (occurrence: None)
  Receive Date: 20080109
  Receipt Date: 20071219
  Transmission Date: 20080703
  Serious: No
  Sender: FDA-Public Use
  Company Number: TPA2007A02538

PATIENT
  Age: 45 Year
  Sex: Female
  Weight: 54.4316 kg

DRUGS (4)
  1. ROZEREM [Suspect]
     Indication: POOR QUALITY SLEEP
     Dosage: 8 MG, QHS, PER ORAL : 8 MG, QHS, ON AND OFF, PER ORAL
     Route: 048
     Dates: start: 20071201, end: 20071201
  2. ROZEREM [Suspect]
     Indication: POOR QUALITY SLEEP
     Dosage: 8 MG, QHS, PER ORAL : 8 MG, QHS, ON AND OFF, PER ORAL
     Route: 048
     Dates: start: 20071201, end: 20071218
  3. UNKNOWN HIGH BLOOD PRESSURE MEDICATION (ANTIHYPERTENSIVES) [Concomitant]
  4. UNKNOWN ANTISPASMOTIC (ANTISPASMODICS/ANTICHOLINERGICS) [Concomitant]

REACTIONS (3)
  - ABNORMAL DREAMS [None]
  - EARLY MORNING AWAKENING [None]
  - LIBIDO INCREASED [None]
